FAERS Safety Report 7634089-3 (Version None)
Quarter: 2011Q3

REPORT INFORMATION
  Report Type: 
  Country: None (occurrence: None)
  Receive Date: 20110725
  Receipt Date: 20110721
  Transmission Date: 20111222
  Serious: Yes (Life-Threatening, Hospitalization)
  Sender: FDA-Public Use
  Company Number: JP-ASTRAZENECA-2011SE41339

PATIENT
  Age: 17 Year
  Sex: Male
  Weight: 62 kg

DRUGS (3)
  1. OMEPRAZOLE [Suspect]
     Indication: GASTROOESOPHAGEAL REFLUX DISEASE
     Route: 048
     Dates: start: 20100125, end: 20110711
  2. PREDNISOLONE [Suspect]
     Indication: AUTOIMMUNE HEPATITIS
     Route: 048
     Dates: start: 20100125
  3. URSO 250 [Suspect]
     Indication: AUTOIMMUNE HEPATITIS
     Route: 048
     Dates: start: 20100125

REACTIONS (1)
  - RHABDOMYOLYSIS [None]
